FAERS Safety Report 20664164 (Version 1)
Quarter: 2022Q2

REPORT INFORMATION
  Report Type: Report from Study
  Country: US (occurrence: US)
  Receive Date: 20220401
  Receipt Date: 20220401
  Transmission Date: 20220721
  Serious: No
  Sender: FDA-Public Use
  Company Number: US-Ipsen Biopharmaceuticals, Inc.-2022-08564

PATIENT
  Sex: Female

DRUGS (1)
  1. SOMATULINE DEPOT [Suspect]
     Active Substance: LANREOTIDE ACETATE
     Indication: Carcinoid syndrome
     Dosage: DOSE: 120MG/0.5ML
     Route: 058
     Dates: start: 20211230

REACTIONS (5)
  - Depressed mood [Recovering/Resolving]
  - Fatigue [Recovering/Resolving]
  - Gastrointestinal sounds abnormal [Recovering/Resolving]
  - Abdominal pain [Recovering/Resolving]
  - Oropharyngeal discomfort [Recovering/Resolving]
